FAERS Safety Report 4551095-6 (Version None)
Quarter: 2005Q1

REPORT INFORMATION
  Report Type: 
  Country: None (occurrence: None)
  Receive Date: 20050106
  Receipt Date: 20041228
  Transmission Date: 20050727
  Serious: Yes (Other)
  Sender: FDA-Public Use
  Company Number: 2004118848

PATIENT
  Age: 80 Year
  Sex: Female

DRUGS (11)
  1. LIPITOR [Suspect]
     Indication: HYPERLIPIDAEMIA
     Dosage: 10 MG (1 IN 1 D), ORAL
     Route: 048
     Dates: start: 20040925, end: 20041204
  2. VALSARTAN           (VALSARTAN) [Suspect]
     Indication: ILL-DEFINED DISORDER
     Dosage: 40 MG (1 IN 1 D), ORAL
     Route: 048
     Dates: start: 20040911
  3. BETAHISTINE                 (BETAHISTINE) [Concomitant]
  4. IFENPRODIL TARTRATE                  (IFENPRODIL TARTRATE) [Concomitant]
  5. CILOSTAZOL [Concomitant]
  6. TANDOSPIRONE CITRATE              (TANDOSPIRONE CITRATE) [Concomitant]
  7. CALCITRIOL [Concomitant]
  8. ATENOLOL [Concomitant]
  9. FAMOTIDINE [Concomitant]
  10. BIOFERMIN [Concomitant]
  11. AMLODIPINE BESYLATE [Concomitant]

REACTIONS (6)
  - ALANINE AMINOTRANSFERASE INCREASED [None]
  - ASPARTATE AMINOTRANSFERASE INCREASED [None]
  - BLOOD ALKALINE PHOSPHATASE INCREASED [None]
  - BLOOD LACTATE DEHYDROGENASE INCREASED [None]
  - GAMMA-GLUTAMYLTRANSFERASE INCREASED [None]
  - HEPATOBILIARY DISEASE [None]
